FAERS Safety Report 9888181 (Version 2)
Quarter: 2014Q1

REPORT INFORMATION
  Report Type: Spontaneous
  Country: US (occurrence: None)
  Receive Date: 20140207
  Receipt Date: 20140224
  Transmission Date: 20141002
  Serious: Yes (Hospitalization, Other)
  Sender: FDA-Public Use
  Company Number: 2014010140

PATIENT
  Age: 85 Year
  Sex: Male

DRUGS (11)
  1. TORASEMIDE [Suspect]
     Indication: HYPERTENSION
     Dosage: 0.5 DOSAGE FORMS (0.5 DOSAGE FORMS, 1 IN 1 D), ORAL
     Route: 048
     Dates: end: 20130322
  2. ATORVASTATIN (ATORVASTATIN) [Concomitant]
  3. LYRICA (PREGABALIN) [Concomitant]
  4. TOLVON (MIANSERIN HYDROCHLORIDE) [Concomitant]
  5. VALORON TROPFEN (TILIDINE HYDROCHLORIDE) [Concomitant]
  6. PANTOPRAZOLE (PANTOPRAZOLE) [Concomitant]
  7. BETASERC (BETAHISTINE HYDROCHLORIDE 24 MILLIGRAM) [Concomitant]
  8. DAFALGAN (PARACETAMOL) [Concomitant]
  9. SERESTA (OXAZEPAM) [Concomitant]
  10. LAXOBERON (SODIUM PICOSULFATE) [Concomitant]
  11. LOGIMAX 5/50MG RETARD (FELODIPINE, METOPROLOL) [Concomitant]

REACTIONS (5)
  - Blood potassium decreased [None]
  - Pulmonary embolism [None]
  - Abdominal pain upper [None]
  - Drug prescribing error [None]
  - Incorrect dose administered [None]
